FAERS Safety Report 12895279 (Version 1)
Quarter: 2016Q4

REPORT INFORMATION
  Report Type: Spontaneous
  Country: US (occurrence: US)
  Receive Date: 20161028
  Receipt Date: 20161028
  Transmission Date: 20170207
  Serious: No
  Sender: FDA-Public Use
  Company Number: None

PATIENT
  Age: 58 Year
  Sex: Female

DRUGS (1)
  1. SIMPONI [Suspect]
     Active Substance: GOLIMUMAB
     Indication: COLITIS ULCERATIVE

REACTIONS (8)
  - Skin lesion [None]
  - Skin sensitisation [None]
  - Alopecia [None]
  - Skin papilloma [None]
  - Contusion [None]
  - Drug ineffective [None]
  - Eye infection [None]
  - Hyperkeratosis [None]

NARRATIVE: CASE EVENT DATE: 20161001
